FAERS Safety Report 10651354 (Version 4)
Quarter: 2015Q2

REPORT INFORMATION
  Report Type: Report from Study
  Country: BR (occurrence: BR)
  Receive Date: 20141215
  Receipt Date: 20150616
  Transmission Date: 20150821
  Serious: Yes (Other)
  Sender: FDA-Public Use
  Company Number: PHHY2014BR133386

PATIENT
  Age: 69 Year
  Sex: Female
  Weight: 65 kg

DRUGS (7)
  1. TIORFAN [Concomitant]
     Active Substance: RACECADOTRIL
     Indication: GASTROINTESTINAL HYPERMOTILITY
     Dosage: 1 DF, Q8H
     Route: 048
  2. TYLEX (PARACETAMOL) [Concomitant]
     Indication: PAIN
     Dosage: UNK OT, Q8H
     Route: 048
  3. SANDOSTATIN LAR DEPOT [Suspect]
     Active Substance: OCTREOTIDE ACETATE
     Indication: CARCINOID TUMOUR OF THE GASTROINTESTINAL TRACT
     Dosage: 1 DF, QMO (REPORTED AS EVERY 28 DAYS)
     Route: 030
  4. AFINITOR [Suspect]
     Active Substance: EVEROLIMUS
     Indication: NEUROENDOCRINE TUMOUR
     Dosage: 5 MG, QD
     Route: 048
     Dates: start: 201310
  5. SANDOSTATIN LAR DEPOT [Suspect]
     Active Substance: OCTREOTIDE ACETATE
     Indication: NEUROENDOCRINE CARCINOMA
  6. PRESS PLUS [Concomitant]
     Indication: HYPERTENSION
     Dosage: 1 DF, QD
     Route: 065
  7. AFINITOR [Suspect]
     Active Substance: EVEROLIMUS
     Dosage: 10 MG, QD
     Route: 048

REACTIONS (9)
  - Ovarian neoplasm [Not Recovered/Not Resolved]
  - Anaemia [Unknown]
  - Thrombosis [Recovering/Resolving]
  - Swelling [Recovering/Resolving]
  - Renal neoplasm [Not Recovered/Not Resolved]
  - Tumour compression [Not Recovered/Not Resolved]
  - Uterine neoplasm [Not Recovered/Not Resolved]
  - Peripheral swelling [Not Recovered/Not Resolved]
  - Malignant neoplasm progression [Not Recovered/Not Resolved]

NARRATIVE: CASE EVENT DATE: 201408
